FAERS Safety Report 5311424-2 (Version None)
Quarter: 2007Q2

REPORT INFORMATION
  Report Type: 
  Country: None (occurrence: None)
  Receive Date: 20070430
  Receipt Date: 20070418
  Transmission Date: 20071010
  Serious: Yes (Other)
  Sender: FDA-Public Use
  Company Number: US-JNJFOC-20070303379

PATIENT
  Age: 33 Year
  Sex: Male
  Weight: 100.7 kg

DRUGS (1)
  1. REMICADE [Suspect]
     Indication: DRUG USE FOR UNKNOWN INDICATION
     Route: 042

REACTIONS (2)
  - CYTOMEGALOVIRUS TEST POSITIVE [None]
  - LYMPHADENOPATHY [None]
